FAERS Safety Report 24707204 (Version 2)
Quarter: 2025Q1

REPORT INFORMATION
  Report Type: Spontaneous
  Country: JP (occurrence: JP)
  Receive Date: 20241206
  Receipt Date: 20250117
  Transmission Date: 20250409
  Serious: Yes (Other)
  Sender: ALEXION PHARMACEUTICALS
  Company Number: JP-ASTRAZENECA-240136796_011620_P_1

PATIENT

DRUGS (18)
  1. LYNPARZA [Suspect]
     Active Substance: OLAPARIB
     Route: 048
  2. LYNPARZA [Suspect]
     Active Substance: OLAPARIB
  3. LYNPARZA [Suspect]
     Active Substance: OLAPARIB
  4. LYNPARZA [Suspect]
     Active Substance: OLAPARIB
     Route: 048
  5. LYNPARZA [Suspect]
     Active Substance: OLAPARIB
  6. LYNPARZA [Suspect]
     Active Substance: OLAPARIB
     Route: 048
  7. LYNPARZA [Suspect]
     Active Substance: OLAPARIB
  8. LYNPARZA [Suspect]
     Active Substance: OLAPARIB
     Route: 048
  9. LYNPARZA [Suspect]
     Active Substance: OLAPARIB
  10. LYNPARZA [Suspect]
     Active Substance: OLAPARIB
  11. LYNPARZA [Suspect]
     Active Substance: OLAPARIB
     Route: 048
  12. LYNPARZA [Suspect]
     Active Substance: OLAPARIB
     Route: 048
  13. LYNPARZA [Suspect]
     Active Substance: OLAPARIB
  14. LYNPARZA [Suspect]
     Active Substance: OLAPARIB
     Route: 048
  15. LYNPARZA [Suspect]
     Active Substance: OLAPARIB
  16. LYNPARZA [Suspect]
     Active Substance: OLAPARIB
     Route: 048
  17. FOLIC ACID [Concomitant]
     Active Substance: FOLIC ACID
     Route: 065
  18. FOLIC ACID [Concomitant]
     Active Substance: FOLIC ACID
     Route: 065

REACTIONS (1)
  - Aplasia pure red cell [Recovered/Resolved]
